FAERS Safety Report 16765796 (Version 4)
Quarter: 2020Q3

REPORT INFORMATION
  Report Type: Spontaneous
  Country: US (occurrence: US)
  Receive Date: 20190903
  Receipt Date: 20200917
  Transmission Date: 20201102
  Serious: Yes (Other)
  Sender: FDA-Public Use
  Company Number: US-GILEAD-2019-0425742

PATIENT
  Sex: Female

DRUGS (2)
  1. GENVOYA [Concomitant]
     Active Substance: COBICISTAT\ELVITEGRAVIR\EMTRICITABINE\TENOFOVIR ALAFENAMIDE FUMARATE
     Indication: HIV INFECTION
     Route: 065
  2. VIREAD [Suspect]
     Active Substance: TENOFOVIR DISOPROXIL FUMARATE
     Indication: HIV INFECTION
     Dosage: UNK
     Route: 048
     Dates: start: 1995, end: 2002

REACTIONS (10)
  - Pain [Unknown]
  - Foot fracture [Not Recovered/Not Resolved]
  - Emotional distress [Unknown]
  - Osteoporotic fracture [Unknown]
  - Fracture [Unknown]
  - Anhedonia [Unknown]
  - Osteoporosis [Not Recovered/Not Resolved]
  - Osteopenia [Not Recovered/Not Resolved]
  - Economic problem [Unknown]
  - Anxiety [Unknown]

NARRATIVE: CASE EVENT DATE: 2016
